FAERS Safety Report 15826612 (Version 2)
Quarter: 2019Q2

REPORT INFORMATION
  Report Type: Spontaneous
  Country: US (occurrence: US)
  Receive Date: 20190115
  Receipt Date: 20190611
  Transmission Date: 20190711
  Serious: No
  Sender: FDA-Public Use
  Company Number: US-PFIZER INC-2019015393

PATIENT
  Age: 44 Year
  Sex: Male
  Weight: 122 kg

DRUGS (2)
  1. IBUPROFEN. [Suspect]
     Active Substance: IBUPROFEN
     Indication: PAIN
     Dosage: 200MG 4, 2 TIMES A DAY
     Dates: start: 2010
  2. IBUPROFEN. [Suspect]
     Active Substance: IBUPROFEN
     Indication: NEURALGIA

REACTIONS (1)
  - Therapeutic product effect incomplete [Unknown]

NARRATIVE: CASE EVENT DATE: 2010
